FAERS Safety Report 7652940-8 (Version None)
Quarter: 2011Q3

REPORT INFORMATION
  Report Type: 
  Country: None (occurrence: None)
  Receive Date: 20110802
  Receipt Date: 20110802
  Transmission Date: 20111222
  Serious: Yes (Other)
  Sender: FDA-Public Use
  Company Number: None

PATIENT
  Age: 47 Year
  Sex: Male
  Weight: 108.8633 kg

DRUGS (4)
  1. VISTARIL [Concomitant]
  2. AZITHROMYCIN [Suspect]
     Indication: PYREXIA
     Dosage: 1 TABLET DAILY FOR 5 - DAYS WITH FOOD
     Dates: start: 20110716, end: 20110718
  3. AZITHROMYCIN [Suspect]
     Indication: OROPHARYNGEAL PAIN
     Dosage: 1 TABLET DAILY FOR 5 - DAYS WITH FOOD
     Dates: start: 20110716, end: 20110718
  4. PREDNISONE [Concomitant]

REACTIONS (5)
  - RASH [None]
  - GAIT DISTURBANCE [None]
  - BLISTER [None]
  - URTICARIA [None]
  - OEDEMA PERIPHERAL [None]
